FAERS Safety Report 17048903 (Version 1)
Quarter: 2019Q4

REPORT INFORMATION
  Report Type: Spontaneous
  Country: US (occurrence: US)
  Receive Date: 20191119
  Receipt Date: 20191119
  Transmission Date: 20200122
  Serious: No
  Sender: FDA-Public Use
  Company Number: US-SA-2019SA314954

PATIENT
  Age: 22 Year
  Sex: Female

DRUGS (1)
  1. FABRAZYME [Suspect]
     Active Substance: AGALSIDASE BETA
     Dosage: UNK UNK, UNK
     Route: 065

REACTIONS (3)
  - Dysstasia [Unknown]
  - Sciatica [Unknown]
  - Bedridden [Unknown]
